FAERS Safety Report 8510225-1 (Version None)
Quarter: 2012Q3

REPORT INFORMATION
  Report Type: 
  Country: None (occurrence: None)
  Receive Date: 20120713
  Receipt Date: 20120709
  Transmission Date: 20120928
  Serious: Yes (Hospitalization, Other)
  Sender: FDA-Public Use
  Company Number: US-PFIZER INC-2012164483

PATIENT
  Sex: Male
  Weight: 91 kg

DRUGS (6)
  1. GLUCOTROL [Suspect]
     Indication: DIABETES MELLITUS
     Dosage: 5 MG, 2X/DAY
  2. LISINOPRIL [Suspect]
     Indication: BLOOD PRESSURE ABNORMAL
     Dosage: 10 MG, DAILY
  3. PLAVIX [Suspect]
     Indication: ARTERIAL OCCLUSIVE DISEASE
     Dosage: 75 MG, DAILY
  4. ASPIRIN [Suspect]
     Indication: CARDIOVASCULAR EVENT PROPHYLAXIS
     Dosage: 81 MG, DAILY
  5. COREG [Suspect]
     Indication: PROPHYLAXIS
     Dosage: 40 MG, DAILY
  6. LIPITOR [Suspect]
     Indication: PROPHYLAXIS
     Dosage: 80 MG, DAILY
     Dates: start: 20070101

REACTIONS (6)
  - CHEST PAIN [None]
  - MYOCARDIAL INFARCTION [None]
  - STRESS [None]
  - PRODUCT PHYSICAL ISSUE [None]
  - ARTERIAL OCCLUSIVE DISEASE [None]
  - BLOOD GLUCOSE INCREASED [None]
